FAERS Safety Report 6821268-8 (Version None)
Quarter: 2010Q3

REPORT INFORMATION
  Report Type: 
  Country: None (occurrence: None)
  Receive Date: 20100707
  Receipt Date: 20080623
  Transmission Date: 20110219
  Serious: No
  Sender: FDA-Public Use
  Company Number: US-PFIZER INC-2008052567

PATIENT
  Sex: Female
  Weight: 68.181 kg

DRUGS (9)
  1. ZOLOFT [Suspect]
     Indication: DEPRESSION
     Dates: start: 20080401
  2. DRUG, UNSPECIFIED [Concomitant]
     Route: 048
  3. LEVOTHYROXINE SODIUM [Concomitant]
     Route: 048
  4. TRAMADOL [Concomitant]
     Route: 048
  5. GLYCERYL TRINITRATE [Concomitant]
  6. ACETYLSALICYLIC ACID [Concomitant]
     Route: 048
  7. TYLENOL [Concomitant]
     Route: 048
  8. TOPAMAX [Concomitant]
     Route: 048
  9. NIROLEX [Concomitant]
     Route: 048

REACTIONS (1)
  - CONTUSION [None]
